FAERS Safety Report 8990690 (Version 1)
Quarter: 2012Q4

REPORT INFORMATION
  Report Type: 
  Country: US (occurrence: US)
  Receive Date: 20121228
  Receipt Date: 20121228
  Transmission Date: 20130627
  Serious: No
  Sender: FDA-Public Use
  Company Number: US-ENDO PHARMACEUTICALS INC.-AMIT20120033

PATIENT
  Sex: Female
  Weight: 77.18 kg

DRUGS (11)
  1. AMITRIPTYLINE HCL [Suspect]
     Indication: PAIN
     Route: 048
     Dates: start: 2010
  2. CLONAZEPAM [Suspect]
     Indication: PAIN
     Route: 048
     Dates: start: 2010
  3. MIRAPEX [Suspect]
     Indication: PAIN
     Route: 048
     Dates: start: 2010
  4. TRAMADOL [Suspect]
     Indication: PAIN
     Route: 048
     Dates: start: 2010
  5. ALEVE [Suspect]
     Indication: PAIN
     Route: 048
     Dates: start: 2010
  6. LYRICA [Suspect]
     Indication: PAIN IN EXTREMITY
     Route: 048
     Dates: start: 201211
  7. LYRICA [Suspect]
     Indication: DIABETIC NEUROPATHY
  8. LYRICA [Suspect]
     Indication: FIBROMYALGIA
  9. LEVEMIR [Concomitant]
     Indication: DIABETES MELLITUS
     Route: 065
  10. NOVOLOG [Concomitant]
     Indication: DIABETES MELLITUS
     Route: 065
  11. HUMALOG [Concomitant]
     Indication: DIABETES MELLITUS
     Route: 065

REACTIONS (4)
  - Abscess [Unknown]
  - Constipation [Recovering/Resolving]
  - VIIth nerve paralysis [Unknown]
  - Somnolence [Unknown]
